FAERS Safety Report 4724800-3 (Version None)
Quarter: 2005Q3

REPORT INFORMATION
  Report Type: 
  Country: None (occurrence: None)
  Receive Date: 20050726
  Receipt Date: 20050420
  Transmission Date: 20060218
  Serious: Yes (Hospitalization)
  Sender: FDA-Public Use
  Company Number: JP-JNJFOC-20050404782

PATIENT
  Age: 84 Year
  Sex: Male

DRUGS (1)
  1. CRAVIT [Suspect]
     Route: 048
     Dates: start: 20050308, end: 20050315

REACTIONS (2)
  - DEPRESSED LEVEL OF CONSCIOUSNESS [None]
  - HYPOGLYCAEMIA [None]
